FAERS Safety Report 10149766 (Version 3)
Quarter: 2014Q2

REPORT INFORMATION
  Report Type: Spontaneous
  Country: DE (occurrence: DE)
  Receive Date: 20140502
  Receipt Date: 20140611
  Transmission Date: 20141212
  Serious: Yes (Hospitalization)
  Sender: FDA-Public Use
  Company Number: DE-JNJFOC-20140419568

PATIENT
  Age: 53 Year
  Sex: Male
  Weight: 109 kg

DRUGS (5)
  1. SIMPONI [Suspect]
     Indication: RHEUMATOID ARTHRITIS
     Route: 058
     Dates: start: 20110502, end: 2014
  2. METHOTREXATE [Suspect]
     Indication: RHEUMATOID ARTHRITIS
     Route: 048
     Dates: start: 20041025
  3. IBUPROFEN [Concomitant]
     Indication: RHEUMATOID ARTHRITIS
     Route: 048
     Dates: start: 20040823
  4. CALCIUM [Concomitant]
     Indication: RHEUMATOID ARTHRITIS
     Route: 048
     Dates: start: 20140123
  5. RADIOACTIVE IODINE [Concomitant]
     Route: 065
     Dates: start: 201402

REACTIONS (1)
  - Thyroid cancer metastatic [Not Recovered/Not Resolved]
